FAERS Safety Report 7473519-7 (Version None)
Quarter: 2011Q2

REPORT INFORMATION
  Report Type: 
  Country: None (occurrence: None)
  Receive Date: 20110511
  Receipt Date: 20110506
  Transmission Date: 20111010
  Serious: Yes (Other)
  Sender: FDA-Public Use
  Company Number: CH-US-EMD SERONO, INC.-7039729

PATIENT
  Sex: Male
  Weight: 72 kg

DRUGS (1)
  1. REBIF [Suspect]
     Indication: MULTIPLE SCLEROSIS
     Route: 058
     Dates: start: 20100127, end: 20101015

REACTIONS (8)
  - FEELING HOT [None]
  - GAIT DISTURBANCE [None]
  - WEIGHT DECREASED [None]
  - CHILLS [None]
  - HYPERGLYCAEMIA [None]
  - PAIN IN EXTREMITY [None]
  - HEPATIC ENZYME INCREASED [None]
  - GENERAL PHYSICAL HEALTH DETERIORATION [None]
